FAERS Safety Report 10976859 (Version 2)
Quarter: 2015Q2

REPORT INFORMATION
  Report Type: Spontaneous
  Country: US (occurrence: US)
  Receive Date: 20150401
  Receipt Date: 20150407
  Transmission Date: 20150821
  Serious: Yes (Hospitalization)
  Sender: FDA-Public Use
  Company Number: US-PFIZER INC-2015109565

PATIENT
  Sex: Female

DRUGS (4)
  1. LYRICA [Suspect]
     Active Substance: PREGABALIN
     Dosage: 75 MG, UNK
  2. LYRICA [Suspect]
     Active Substance: PREGABALIN
     Dosage: 225 MG, DAILY (75 MG, 3 CAPSULES)
  3. LYRICA [Suspect]
     Active Substance: PREGABALIN
     Dosage: EVERY 5 HOURS UP TO 5 A DAY
  4. LYRICA [Suspect]
     Active Substance: PREGABALIN
     Indication: PERIPHERAL NERVE INJURY
     Dosage: 2 DF, DAILY (2 PREGABALIN DAILY)
     Dates: start: 201201

REACTIONS (3)
  - Cardiac failure congestive [Unknown]
  - Balance disorder [Unknown]
  - Emphysema [Unknown]
